FAERS Safety Report 7010538-9 (Version None)
Quarter: 2010Q3

REPORT INFORMATION
  Report Type: 
  Country: None (occurrence: None)
  Receive Date: 20100923
  Receipt Date: 20100914
  Transmission Date: 20110219
  Serious: Yes (Other)
  Sender: FDA-Public Use
  Company Number: DE-WYE-G04930209

PATIENT
  Sex: Male
  Weight: 70 kg

DRUGS (2)
  1. REFACTO [Suspect]
     Indication: FACTOR VIII DEFICIENCY
     Route: 042
     Dates: start: 20090703, end: 20091101
  2. REFACTO [Suspect]
     Route: 042
     Dates: start: 20091101, end: 20100101

REACTIONS (5)
  - COAGULATION FACTOR VIII LEVEL DECREASED [None]
  - EPISTAXIS [None]
  - FACTOR VIII INHIBITION [None]
  - HAEMARTHROSIS [None]
  - INFECTION [None]
